FAERS Safety Report 5505220-0 (Version None)
Quarter: 2007Q4

REPORT INFORMATION
  Report Type: 
  Country: None (occurrence: None)
  Receive Date: 20071102
  Receipt Date: 20071023
  Transmission Date: 20080405
  Serious: Yes (Hospitalization)
  Sender: FDA-Public Use
  Company Number: US-AMGEN-KDL245422

PATIENT
  Sex: Male

DRUGS (2)
  1. ENBREL [Suspect]
     Indication: RHEUMATOID ARTHRITIS
     Route: 058
     Dates: start: 20060802
  2. PLAQUENIL [Concomitant]
     Route: 048
     Dates: start: 20050101

REACTIONS (6)
  - CHILLS [None]
  - HYPERCOAGULATION [None]
  - PAIN [None]
  - PYREXIA [None]
  - RHEUMATOID ARTHRITIS [None]
  - VIRAL INFECTION [None]
